FAERS Safety Report 20244532 (Version 1)
Quarter: 2021Q4

REPORT INFORMATION
  Report Type: Spontaneous
  Country: PT (occurrence: PT)
  Receive Date: 20211229
  Receipt Date: 20211229
  Transmission Date: 20220303
  Serious: Yes (Hospitalization, Other)
  Sender: FDA-Public Use
  Company Number: PT-LUPIN PHARMACEUTICALS INC.-2021-25728

PATIENT
  Age: 10 Year
  Sex: Female

DRUGS (8)
  1. LEVETIRACETAM [Suspect]
     Active Substance: LEVETIRACETAM
     Indication: Partial seizures
     Dosage: UNK
     Route: 065
  2. LEVETIRACETAM [Suspect]
     Active Substance: LEVETIRACETAM
     Indication: Seizure
  3. PHENYTOIN SODIUM [Suspect]
     Active Substance: PHENYTOIN SODIUM
     Indication: Partial seizures
     Dosage: UNK
     Route: 065
  4. PHENYTOIN SODIUM [Suspect]
     Active Substance: PHENYTOIN SODIUM
     Indication: Seizure
  5. PHENOBARBITAL [Suspect]
     Active Substance: PHENOBARBITAL
     Indication: Partial seizures
     Dosage: UNK
     Route: 065
  6. PHENOBARBITAL [Suspect]
     Active Substance: PHENOBARBITAL
     Indication: Seizure
  7. PERAMPANEL [Suspect]
     Active Substance: PERAMPANEL
     Indication: Partial seizures
     Dosage: UNK
     Route: 065
  8. PERAMPANEL [Suspect]
     Active Substance: PERAMPANEL
     Indication: Seizure

REACTIONS (2)
  - Hypersensitivity [Recovering/Resolving]
  - Drug reaction with eosinophilia and systemic symptoms [Recovering/Resolving]
